FAERS Safety Report 5232595-2 (Version None)
Quarter: 2007Q1

REPORT INFORMATION
  Report Type: 
  Country: None (occurrence: None)
  Receive Date: 20070207
  Receipt Date: 20070112
  Transmission Date: 20070707
  Serious: Yes (Congenital Anomaly)
  Sender: FDA-Public Use
  Company Number: US-ROCHE-480498

PATIENT
  Weight: 2.9 kg

DRUGS (4)
  1. MYCOPHENOLATE MOFETIL [Suspect]
  2. TACROLIMUS [Concomitant]
  3. PREDNISONE [Concomitant]
  4. ACYCLOVIR [Concomitant]

REACTIONS (1)
  - MICROTIA [None]
